FAERS Safety Report 16921219 (Version 1)
Quarter: 2019Q4

REPORT INFORMATION
  Report Type: Spontaneous
  Country: ES (occurrence: ES)
  Receive Date: 20191015
  Receipt Date: 20191015
  Transmission Date: 20200122
  Serious: Yes (Hospitalization)
  Sender: FDA-Public Use
  Company Number: ES-ELI_LILLY_AND_COMPANY-ES201910002580

PATIENT
  Age: 67 Year
  Sex: Female
  Weight: 101 kg

DRUGS (13)
  1. NEXIUM CONTROL [Concomitant]
     Active Substance: ESOMEPRAZOLE MAGNESIUM
     Dosage: 20 MG, DAILY
     Route: 048
     Dates: start: 2009
  2. SIMVASTATINA [Concomitant]
     Active Substance: SIMVASTATIN
     Dosage: UNK, UNKNOWN
     Route: 065
  3. ORFIDAL [Concomitant]
     Active Substance: LORAZEPAM
     Dosage: UNK, UNKNOWN
     Route: 065
  4. TRANKIMAZIN [Concomitant]
     Active Substance: ALPRAZOLAM
     Dosage: UNK, UNKNOWN
     Route: 065
  5. EZETIMIBA [Concomitant]
     Active Substance: EZETIMIBE
     Dosage: UNK, UNKNOWN
     Route: 065
  6. DEANXIT [Concomitant]
     Active Substance: FLUPENTIXOL DIHYDROCHLORIDE\MELITRACEN HYDROCHLORIDE
     Dosage: UNK, UNKNOWN
     Route: 065
  7. SEROXAT [Concomitant]
     Active Substance: PAROXETINE HYDROCHLORIDE
     Dosage: UNK, UNKNOWN
     Route: 065
  8. ZAMENE [Concomitant]
     Active Substance: DEFLAZACORT
     Route: 048
     Dates: start: 2018
  9. MIRTAZAPINA [Concomitant]
     Active Substance: MIRTAZAPINE
     Dosage: UNK, UNKNOWN
     Route: 065
  10. EUTIROX [Concomitant]
     Active Substance: LEVOTHYROXINE SODIUM
     Dosage: 100 UG, DAILY
     Route: 048
  11. FELIBEN [Concomitant]
     Active Substance: BUPRENORPHINE
     Dosage: UNK, UNKNOWN
     Route: 065
  12. CO DIOVAN [Concomitant]
     Active Substance: HYDROCHLOROTHIAZIDE\VALSARTAN
     Dosage: UNK, UNKNOWN
     Route: 065
  13. OLUMIANT [Suspect]
     Active Substance: BARICITINIB
     Indication: RHEUMATOID ARTHRITIS
     Dosage: 2 MG, DAILY
     Route: 048
     Dates: start: 20190614, end: 20190909

REACTIONS (3)
  - Asphyxia [Recovered/Resolved]
  - Fluid retention [Recovering/Resolving]
  - Pulmonary embolism [Recovering/Resolving]

NARRATIVE: CASE EVENT DATE: 20190715
